FAERS Safety Report 20623006 (Version 1)
Quarter: 2022Q1

REPORT INFORMATION
  Report Type: Spontaneous
  Country: CN (occurrence: None)
  Receive Date: 20220322
  Receipt Date: 20220322
  Transmission Date: 20220423
  Serious: Yes (Other)
  Sender: FDA-Public Use
  Company Number: CN-ROCHE-3049128

PATIENT
  Age: 50 Year
  Sex: Female

DRUGS (11)
  1. CAPECITABINE [Suspect]
     Active Substance: CAPECITABINE
     Indication: Invasive ductal breast carcinoma
     Dosage: 1500MG IN THE MORNING AND 1000MG IN THE EVENING, ON DAY 1-14, 3 WEEKS AS A CYCLE
     Route: 048
     Dates: start: 202009
  2. TRASTUZUMAB [Suspect]
     Active Substance: TRASTUZUMAB
     Indication: Invasive ductal breast carcinoma
     Dosage: 8MG/M2 FOR THE FIRST TIME, THEN 6MG/M2
     Route: 065
     Dates: start: 202109, end: 202112
  3. TRASTUZUMAB [Suspect]
     Active Substance: TRASTUZUMAB
     Dosage: 8MG/M2 FOR THE FIRST TIME, THEN 6MG/M2
     Route: 065
     Dates: start: 202112
  4. PERTUZUMAB [Suspect]
     Active Substance: PERTUZUMAB
     Indication: Invasive ductal breast carcinoma
     Dosage: FOR THE FIRST TIME
     Route: 065
     Dates: start: 202112
  5. EPIRUBICIN [Concomitant]
     Active Substance: EPIRUBICIN
     Indication: Invasive ductal breast carcinoma
     Dosage: ON DAY 1
  6. CYCLOPHOSPHAMIDE [Concomitant]
     Active Substance: CYCLOPHOSPHAMIDE
     Indication: Invasive ductal breast carcinoma
     Dosage: ON DAY 1
  7. DOCETAXEL [Concomitant]
     Active Substance: DOCETAXEL
     Indication: Invasive ductal breast carcinoma
     Dosage: ON DAY 1
  8. PACLITAXEL [Concomitant]
     Active Substance: PACLITAXEL
     Indication: Invasive ductal breast carcinoma
     Dates: start: 202004, end: 202007
  9. VINORELBINE TARTRATE [Concomitant]
     Active Substance: VINORELBINE TARTRATE
     Indication: Invasive ductal breast carcinoma
     Dosage: ON DAY 1, 8, 3 WEEKS AS A CYCLE
     Dates: start: 202012, end: 202102
  10. SINTILIMAB [Concomitant]
     Active Substance: SINTILIMAB
     Indication: Invasive ductal breast carcinoma
     Route: 041
     Dates: start: 202102, end: 202109
  11. APATINIB [Concomitant]
     Active Substance: APATINIB
     Indication: Invasive ductal breast carcinoma
     Dates: start: 202102, end: 202109

REACTIONS (3)
  - Blood pressure increased [Recovered/Resolved]
  - Thyroid function test abnormal [Unknown]
  - Blood corticotrophin increased [Recovered/Resolved]

NARRATIVE: CASE EVENT DATE: 20210901
